FAERS Safety Report 4383790-6 (Version None)
Quarter: 2004Q2

REPORT INFORMATION
  Report Type: 
  Country: None (occurrence: None)
  Receive Date: 20040608
  Receipt Date: 20031007
  Transmission Date: 20050107
  Serious: Yes (Other)
  Sender: FDA-Public Use
  Company Number: 200313663BCC

PATIENT
  Age: 58 Year
  Sex: Female

DRUGS (2)
  1. ALEVE [Suspect]
     Indication: PAIN
     Dosage: 220 MG, ORAL
     Route: 048
     Dates: start: 20000101
  2. MULTIVITAMIN [Concomitant]

REACTIONS (4)
  - ANAPHYLACTIC SHOCK [None]
  - PRURITUS [None]
  - SPEECH DISORDER [None]
  - THROAT TIGHTNESS [None]
